FAERS Safety Report 9850480 (Version 1)
Quarter: 2013Q4

REPORT INFORMATION
  Report Type: Spontaneous
  Country: US (occurrence: None)
  Receive Date: 20131226
  Receipt Date: 20131226
  Transmission Date: 20140711
  Serious: Yes (Death)
  Sender: FDA-Public Use
  Company Number: PHEH2012US012128

PATIENT
  Sex: Female

DRUGS (1)
  1. AFINITOR ( RAD) UNKNOWN [Suspect]
     Indication: MALIGNANT URINARY TRACT NEOPLASM
     Dosage: 10 MG, DAILY, ORAL
     Route: 048
     Dates: start: 20120501

REACTIONS (1)
  - Pneumonia staphylococcal [None]
